FAERS Safety Report 22068589 (Version 1)
Quarter: 2023Q1

REPORT INFORMATION
  Report Type: Spontaneous
  Country: US (occurrence: None)
  Receive Date: 20230306
  Receipt Date: 20230306
  Transmission Date: 20230417
  Serious: Yes (Hospitalization)
  Sender: FDA-Public Use
  Company Number: None

PATIENT
  Age: 74 Year
  Sex: Male

DRUGS (1)
  1. CAPECITABINE [Suspect]
     Active Substance: CAPECITABINE
     Dosage: FREQUENCY : TWICE A DAY;?
     Route: 048

REACTIONS (11)
  - Intestinal obstruction [None]
  - Diarrhoea [None]
  - Weight decreased [None]
  - Dehydration [None]
  - Hypotension [None]
  - Incontinence [None]
  - Hypophagia [None]
  - Therapy interrupted [None]
  - Nausea [None]
  - Temperature intolerance [None]
  - Tongue disorder [None]

NARRATIVE: CASE EVENT DATE: 20230306
